FAERS Safety Report 14295766 (Version 1)
Quarter: 2017Q4

REPORT INFORMATION
  Report Type: Spontaneous
  Country: US (occurrence: US)
  Receive Date: 20171215
  Receipt Date: 20171215
  Transmission Date: 20180321
  Serious: Yes (Other)
  Sender: FDA-Public Use
  Company Number: None

PATIENT
  Age: 51 Year
  Sex: Female

DRUGS (4)
  1. ZOMETA [Concomitant]
     Active Substance: ZOLEDRONIC ACID
  2. IBRANCE [Suspect]
     Active Substance: PALBOCICLIB
     Indication: HEPATOBILIARY CANCER
     Dosage: 100MG CAP 1 CAP ONCE A DAY ORAL
     Route: 048
     Dates: start: 20150901
  3. LETROZOLE. [Suspect]
     Active Substance: LETROZOLE
     Indication: HEPATOBILIARY CANCER
  4. LEVOTHYROXIN [Concomitant]
     Active Substance: LEVOTHYROXINE

REACTIONS (1)
  - Pulmonary thrombosis [None]

NARRATIVE: CASE EVENT DATE: 201707
